FAERS Safety Report 12988213 (Version 3)
Quarter: 2018Q2

REPORT INFORMATION
  Report Type: Spontaneous
  Country: US (occurrence: US)
  Receive Date: 20161130
  Receipt Date: 20180511
  Transmission Date: 20180711
  Serious: Yes (Other)
  Sender: FDA-Public Use
  Company Number: US-SAOL THERAPEUTICS-2016SAO00454

PATIENT
  Sex: Male
  Weight: 85.71 kg

DRUGS (7)
  1. COMPOUNDED BACLOFEN [Suspect]
     Active Substance: BACLOFEN
     Indication: MUSCLE SPASTICITY
     Dosage: 0.03332 MG, \DAY
     Route: 037
  2. BUPIVACAINE. [Suspect]
     Active Substance: BUPIVACAINE
     Dosage: 5 MG, \DAY
     Route: 037
  3. BUPIVACAINE. [Suspect]
     Active Substance: BUPIVACAINE
     Dosage: 0.196 MG, \DAY
     Route: 037
     Dates: start: 20180326, end: 20180409
  4. CLONIDINE. [Suspect]
     Active Substance: CLONIDINE
     Dosage: 0.00196 MG, \DAY
     Route: 037
     Dates: start: 20180326, end: 20180409
  5. BACLOFEN. [Suspect]
     Active Substance: BACLOFEN
     Dosage: 0.00131 MG, \DAY
     Route: 037
     Dates: start: 20180326, end: 20180409
  6. COMPOUNDED BACLOFEN [Suspect]
     Active Substance: BACLOFEN
     Indication: SPINAL PAIN
  7. CLONIDINE. [Suspect]
     Active Substance: CLONIDINE
     Dosage: 0.049 ?G, \DAY
     Route: 037

REACTIONS (3)
  - Discomfort [Unknown]
  - Device infusion issue [Recovered/Resolved]
  - Pain [Unknown]

NARRATIVE: CASE EVENT DATE: 2016
